FAERS Safety Report 23497339 (Version 1)
Quarter: 2024Q1

REPORT INFORMATION
  Report Type: Spontaneous
  Country: US (occurrence: None)
  Receive Date: 20240207
  Receipt Date: 20240207
  Transmission Date: 20240409
  Serious: No
  Sender: FDA-Public Use
  Company Number: US-ROCHE-3380588

PATIENT
  Age: 10 Year
  Sex: Female

DRUGS (3)
  1. XOLAIR [Suspect]
     Active Substance: OMALIZUMAB
     Indication: Product used for unknown indication
     Route: 058
     Dates: start: 20230627
  2. XOLAIR [Suspect]
     Active Substance: OMALIZUMAB
  3. XOLAIR [Suspect]
     Active Substance: OMALIZUMAB

REACTIONS (6)
  - Urticaria [Unknown]
  - Abdominal pain upper [Unknown]
  - Tongue pruritus [Unknown]
  - Arthralgia [Unknown]
  - Flushing [Unknown]
  - Eye swelling [Unknown]

NARRATIVE: CASE EVENT DATE: 20230627
